FAERS Safety Report 7615617-0 (Version None)
Quarter: 2011Q3

REPORT INFORMATION
  Report Type: 
  Country: None (occurrence: None)
  Receive Date: 20110711
  Receipt Date: 20110613
  Transmission Date: 20111222
  Serious: Yes (Hospitalization)
  Sender: FDA-Public Use
  Company Number: 15441454

PATIENT
  Age: 68 Year
  Sex: Male

DRUGS (2)
  1. PLACEBO [Suspect]
     Indication: THROMBOSIS PROPHYLAXIS
     Route: 048
     Dates: start: 20090213, end: 20101207
  2. WARFARIN SODIUM [Suspect]
     Indication: THROMBOSIS PROPHYLAXIS
     Dosage: 2 MILLIGRAM 1 DAY
     Route: 048
     Dates: start: 20090213, end: 20101207

REACTIONS (16)
  - ATRIAL FIBRILLATION [None]
  - HYPERTENSION [None]
  - ACUTE MYOCARDIAL INFARCTION [None]
  - BLOOD LACTATE DEHYDROGENASE INCREASED [None]
  - BLOOD PRESSURE FLUCTUATION [None]
  - CORONARY ARTERY OCCLUSION [None]
  - INTERNATIONAL NORMALISED RATIO ABNORMAL [None]
  - GASTROINTESTINAL ULCER [None]
  - ASPARTATE AMINOTRANSFERASE INCREASED [None]
  - ARRHYTHMIA [None]
  - HYPERLIPIDAEMIA [None]
  - ASTHMA [None]
  - BENIGN PROSTATIC HYPERPLASIA [None]
  - UPPER GASTROINTESTINAL HAEMORRHAGE [None]
  - ARTERIOSCLEROSIS CORONARY ARTERY [None]
  - COLLATERAL CIRCULATION [None]
